FAERS Safety Report 6843051-X (Version None)
Quarter: 2010Q3

REPORT INFORMATION
  Report Type: 
  Country: None (occurrence: None)
  Receive Date: 20100712
  Receipt Date: 20100628
  Transmission Date: 20110219
  Serious: Yes (Hospitalization)
  Sender: FDA-Public Use
  Company Number: 014617

PATIENT
  Sex: Female
  Weight: 42 kg

DRUGS (7)
  1. CIMZIA [Suspect]
     Indication: CROHN'S DISEASE
     Dosage: (400 MG 1X/MONTH SUBCUTANEOUS)
     Route: 058
     Dates: start: 20090101
  2. FLAGYL [Concomitant]
  3. NEURONTIN [Concomitant]
  4. AMITRIPTYLINE HYDROCHLORIDE [Concomitant]
  5. ZOFRAN [Concomitant]
  6. TYLENOL (CAPLET) [Concomitant]
  7. NAPROXEN [Concomitant]

REACTIONS (3)
  - GASTROINTESTINAL INFECTION [None]
  - PYREXIA [None]
  - VOMITING [None]
